FAERS Safety Report 9978688 (Version 1)
Quarter: 2014Q1

REPORT INFORMATION
  Report Type: Report from Study
  Country: US (occurrence: US)
  Receive Date: 20140306
  Receipt Date: 20140306
  Transmission Date: 20141002
  Serious: No
  Sender: FDA-Public Use
  Company Number: US-ABBVIE-13P-163-1169888-00

PATIENT
  Age: 56 Year
  Sex: Female
  Weight: 68.1 kg

DRUGS (13)
  1. HUMIRA [Suspect]
     Indication: CROHN^S DISEASE
     Route: 058
     Dates: start: 20131016
  2. METOPROLOL [Concomitant]
     Indication: PALPITATIONS
  3. ASPIRIN [Concomitant]
     Indication: ANTICOAGULANT THERAPY
  4. IMURAN [Concomitant]
     Indication: CROHN^S DISEASE
  5. ZYRTEC [Concomitant]
     Indication: HYPERSENSITIVITY
  6. VITAMIN D3 [Concomitant]
     Indication: VITAMIN SUPPLEMENTATION
  7. VITAMIN B 12 [Concomitant]
     Indication: VITAMIN SUPPLEMENTATION
  8. BENTYL [Concomitant]
     Indication: CROHN^S DISEASE
  9. PROMETHAZINE [Concomitant]
     Indication: CROHN^S DISEASE
  10. ZOCOR [Concomitant]
     Indication: BLOOD CHOLESTEROL INCREASED
  11. VITAMIN E [Concomitant]
     Indication: VITAMIN SUPPLEMENTATION
  12. ZINC [Concomitant]
     Indication: VITAMIN SUPPLEMENTATION
  13. FISH OIL [Concomitant]
     Indication: VITAMIN SUPPLEMENTATION

REACTIONS (1)
  - Incorrect dose administered [Not Recovered/Not Resolved]
